FAERS Safety Report 5705085-8 (Version None)
Quarter: 2008Q2

REPORT INFORMATION
  Report Type: 
  Country: None (occurrence: None)
  Receive Date: 20080410
  Receipt Date: 20080327
  Transmission Date: 20081010
  Serious: Yes (Death, Hospitalization)
  Sender: FDA-Public Use
  Company Number: 2008000734

PATIENT
  Sex: Female

DRUGS (12)
  1. TARCEVA [Suspect]
     Indication: NON-SMALL CELL LUNG CANCER RECURRENT
     Dosage: (150 MG, QD), ORAL
     Route: 048
     Dates: start: 20080101
  2. LORAZEPAM [Concomitant]
  3. ALBUTEROL [Concomitant]
  4. PREDNISONE TAB [Concomitant]
  5. CARAFATE [Concomitant]
  6. OMEPRAZOLE [Concomitant]
  7. LEVOTHYROXINE SODIUM [Concomitant]
  8. GABAPENTIN [Concomitant]
  9. PENTOXIFYLLINE [Concomitant]
  10. NYSTATIN [Concomitant]
  11. HYDROCODONE (HYDROCODONE) [Concomitant]
  12. BENZONATATE [Concomitant]

REACTIONS (13)
  - COUGH [None]
  - DYSPNOEA [None]
  - HAEMATOCRIT DECREASED [None]
  - LYMPHOCYTE COUNT DECREASED [None]
  - MALIGNANT NEOPLASM PROGRESSION [None]
  - NEUTROPHIL COUNT INCREASED [None]
  - PLEURAL EFFUSION [None]
  - PNEUMONITIS [None]
  - PULMONARY FIBROSIS [None]
  - RASH [None]
  - RED BLOOD CELL COUNT DECREASED [None]
  - RESPIRATORY FAILURE [None]
  - WHITE BLOOD CELL COUNT INCREASED [None]
